FAERS Safety Report 19194509 (Version 3)
Quarter: 2021Q4

REPORT INFORMATION
  Report Type: Spontaneous
  Country: PR (occurrence: PR)
  Receive Date: 20210429
  Receipt Date: 20211124
  Transmission Date: 20220303
  Serious: No
  Sender: FDA-Public Use
  Company Number: PR-PFIZER INC-2021366746

PATIENT
  Age: 15 Year
  Sex: Male
  Weight: 45.36 kg

DRUGS (2)
  1. GENOTROPIN [Suspect]
     Active Substance: SOMATROPIN
     Indication: Hypopituitarism
     Dosage: UNK, CYCLIC (2.4 BY SHOT, GIVES IN THIGH ONCE IN EACH THIGH 6 DAYS A WEEK, DAY OFF ON SATURDAY)
     Dates: start: 2018
  2. GENOTROPIN [Suspect]
     Active Substance: SOMATROPIN
     Indication: Growth hormone deficiency
     Dosage: 2.4 MG, DAILY

REACTIONS (5)
  - Drug ineffective [Unknown]
  - Drug dose omission by device [Unknown]
  - Device physical property issue [Unknown]
  - Device power source issue [Unknown]
  - Device information output issue [Unknown]
